FAERS Safety Report 8732946 (Version 2)
Quarter: 2012Q4

REPORT INFORMATION
  Report Type: Report from Study
  Country: US (occurrence: US)
  Receive Date: 20120820
  Receipt Date: 20120928
  Transmission Date: 20130627
  Serious: Yes (Other)
  Sender: FDA-Public Use
  Company Number: US-ABBOTT-12P-163-0967638-00

PATIENT
  Age: 56 Year
  Sex: Female
  Weight: 131.21 kg

DRUGS (3)
  1. HUMIRA [Suspect]
     Indication: RHEUMATOID ARTHRITIS
     Dates: start: 20120807, end: 20120821
  2. KEPPRA [Concomitant]
     Indication: EPILEPSY
  3. LAMICTAL [Concomitant]
     Indication: EPILEPSY

REACTIONS (9)
  - Convulsion [Recovering/Resolving]
  - Convulsion [Recovering/Resolving]
  - Headache [Recovering/Resolving]
  - Fatigue [Recovering/Resolving]
  - Asthenia [Recovering/Resolving]
  - Dysphonia [Not Recovered/Not Resolved]
  - Bedridden [Recovering/Resolving]
  - Hypersomnia [Recovering/Resolving]
  - Dizziness [Recovering/Resolving]
